FAERS Safety Report 20032499 (Version 3)
Quarter: 2022Q1

REPORT INFORMATION
  Report Type: Spontaneous
  Country: US (occurrence: US)
  Receive Date: 20211103
  Receipt Date: 20220119
  Transmission Date: 20220424
  Serious: No
  Sender: FDA-Public Use
  Company Number: US-TAKEDA-2021TUS066210

PATIENT
  Age: 75 Year
  Sex: Male
  Weight: 97.959 kg

DRUGS (1)
  1. NINLARO [Suspect]
     Active Substance: IXAZOMIB CITRATE
     Indication: Plasma cell myeloma
     Dosage: 2.3 MILLIGRAM
     Route: 048
     Dates: start: 202109

REACTIONS (7)
  - Pruritus [Unknown]
  - Skin swelling [Unknown]
  - Drug intolerance [Unknown]
  - Drug ineffective [Unknown]
  - Neutrophil count decreased [Unknown]
  - Rash macular [Unknown]
  - Nausea [Unknown]

NARRATIVE: CASE EVENT DATE: 20211006
